FAERS Safety Report 15713043 (Version 1)
Quarter: 2018Q4

REPORT INFORMATION
  Report Type: Spontaneous
  Country: CA (occurrence: CA)
  Receive Date: 20181212
  Receipt Date: 20181212
  Transmission Date: 20190205
  Serious: Yes (Death, Other)
  Sender: FDA-Public Use
  Company Number: CA-PURDUE PHARMA-CAN-2018-0009423

PATIENT
  Age: 34 Year
  Sex: Male

DRUGS (2)
  1. OXYCODONE HYDROCHLORIDE. [Suspect]
     Active Substance: OXYCODONE HYDROCHLORIDE
     Indication: PRODUCT USED FOR UNKNOWN INDICATION
     Dosage: UNK
     Route: 065
  2. METHAMPHETAMINE [Suspect]
     Active Substance: METHAMPHETAMINE
     Indication: PRODUCT USED FOR UNKNOWN INDICATION
     Dosage: UNK
     Route: 065

REACTIONS (11)
  - Respiratory failure [Unknown]
  - Unresponsive to stimuli [Unknown]
  - Pallor [Unknown]
  - Delirium [Fatal]
  - Emotional distress [Unknown]
  - Hyperhidrosis [Unknown]
  - Poisoning [Unknown]
  - Dyspnoea [Unknown]
  - Toxicity to various agents [Fatal]
  - Euphoric mood [Unknown]
  - Aggression [Unknown]
